FAERS Safety Report 7434379-3 (Version None)
Quarter: 2011Q2

REPORT INFORMATION
  Report Type: 
  Country: None (occurrence: None)
  Receive Date: 20110425
  Receipt Date: 20110412
  Transmission Date: 20111010
  Serious: Yes (Other)
  Sender: FDA-Public Use
  Company Number: PHHY2011NZ31527

PATIENT
  Sex: Female

DRUGS (1)
  1. FAMVIR [Suspect]
     Indication: ORAL HERPES
     Dosage: 1500 MG, QD
     Route: 048

REACTIONS (2)
  - MYOCARDIAL INFARCTION [None]
  - HEART RATE INCREASED [None]
